FAERS Safety Report 11837916 (Version 1)
Quarter: 2015Q4

REPORT INFORMATION
  Report Type: Spontaneous
  Country: AU (occurrence: AU)
  Receive Date: 20151215
  Receipt Date: 20151215
  Transmission Date: 20160305
  Serious: Yes (Hospitalization)
  Sender: FDA-Public Use
  Company Number: AU-SA-2015SA206337

PATIENT
  Sex: Female
  Weight: 61 kg

DRUGS (4)
  1. RIFAMPICIN [Concomitant]
     Active Substance: RIFAMPIN
     Route: 065
  2. STILNOX [Suspect]
     Active Substance: ZOLPIDEM TARTRATE
     Route: 048
  3. CIPROFLOXACIN. [Concomitant]
     Active Substance: CIPROFLOXACIN
     Route: 065
  4. PREDNISOLONE. [Concomitant]
     Active Substance: PREDNISOLONE
     Route: 065

REACTIONS (10)
  - Confusional state [Unknown]
  - Headache [Unknown]
  - Agitation [Unknown]
  - Amnesia [Unknown]
  - Fatigue [Unknown]
  - Dizziness [Unknown]
  - Somnambulism [Unknown]
  - Nightmare [Unknown]
  - Somnolence [Unknown]
  - Hallucination [Unknown]
